FAERS Safety Report 5199556-3 (Version None)
Quarter: 2006Q4

REPORT INFORMATION
  Report Type: 
  Country: None (occurrence: None)
  Receive Date: 20061229
  Receipt Date: 20061222
  Transmission Date: 20070319
  Serious: Yes (Other)
  Sender: FDA-Public Use
  Company Number: 234273

PATIENT
  Age: 12 Year
  Sex: Female
  Weight: 48.2 kg

DRUGS (4)
  1. NUTROPIN AQ [Suspect]
     Indication: RENAL FAILURE CHRONIC
     Dosage: 1.2 MG, 7/WEEK,
     Dates: start: 20031203, end: 20060303
  2. SYNTHROID [Concomitant]
  3. DDAVP (DESMOPRESSIN ACETATE) [Concomitant]
  4. CORTEF [Concomitant]

REACTIONS (4)
  - CRANIOPHARYNGIOMA [None]
  - HYPOACUSIS [None]
  - PITUITARY NEOPLASM MALIGNANT RECURRENT [None]
  - TINNITUS [None]
